FAERS Safety Report 4556596-2 (Version None)
Quarter: 2005Q1

REPORT INFORMATION
  Report Type: 
  Country: None (occurrence: None)
  Receive Date: 20050118
  Receipt Date: 20050105
  Transmission Date: 20050727
  Serious: Yes (Other)
  Sender: FDA-Public Use
  Company Number: 2005006105

PATIENT
  Age: 79 Year
  Sex: Female
  Weight: 63.5036 kg

DRUGS (9)
  1. NEURONTIN [Suspect]
     Indication: NEURALGIA
     Dosage: 300 MG (300 MG, 1 IN 1 D), ORAL
     Route: 048
     Dates: start: 20041201, end: 20041201
  2. BALSALAZIDE SODIUM (BALSALAZIDE SODIUM) [Concomitant]
  3. DIAZYDE (HYDROCHLOROTHIAZIDE) [Concomitant]
  4. NIFEDIPINE [Concomitant]
  5. RALOXIFENE HCL [Concomitant]
  6. MULTIVITAMINS AND IRON (MULTIVITAMINS AND IRON) [Concomitant]
  7. GLUCOSAMINE (GLUCOSAMINE) [Concomitant]
  8. NORTRIPTYLINE HCL [Concomitant]
  9. ATORVASTATIN (ATORVASTATIN) [Concomitant]

REACTIONS (1)
  - GASTROINTESTINAL HAEMORRHAGE [None]
